FAERS Safety Report 9414650 (Version 1)
Quarter: 2013Q3

REPORT INFORMATION
  Report Type: Spontaneous
  Country: DE (occurrence: DE)
  Receive Date: 20130723
  Receipt Date: 20130723
  Transmission Date: 20140515
  Serious: Yes (Other)
  Sender: FDA-Public Use
  Company Number: DE-PFIZER INC-2013211557

PATIENT
  Age: 79 Year
  Sex: Female
  Weight: 62 kg

DRUGS (6)
  1. METHYLPREDNISOLONE [Suspect]
     Indication: BONE MARROW FAILURE
     Dosage: 150 MG PER DAY
  2. FILGRASTIM [Concomitant]
     Dosage: 300 ?G PER DAY
  3. IMIPENEM [Concomitant]
     Indication: BACTERIAL INFECTION
     Dosage: 500 MG, 3X/DAY
  4. VANCOMYCIN [Concomitant]
     Indication: BACTERIAL INFECTION
     Dosage: 1000 MG PER DAY
  5. TOBRAMYCIN [Concomitant]
     Indication: ANTIBIOTIC THERAPY
     Dosage: 80 MG, 3X/DAY
  6. CEFOTAXIME [Concomitant]
     Indication: ANTIBIOTIC THERAPY
     Dosage: 2 G, 3X/DAY

REACTIONS (2)
  - Diabetes mellitus [Unknown]
  - Psychotic disorder [Recovering/Resolving]
